FAERS Safety Report 9345008 (Version 4)
Quarter: 2014Q1

REPORT INFORMATION
  Report Type: Report from Study
  Country: NL (occurrence: NL)
  Receive Date: 20130612
  Receipt Date: 20140113
  Transmission Date: 20141002
  Serious: Yes (Other)
  Sender: FDA-Public Use
  Company Number: NL-US-EMD SERONO, INC.-7195116

PATIENT
  Age: 29 Year
  Sex: Male
  Weight: 80 kg

DRUGS (6)
  1. REBIF [Suspect]
     Indication: MULTIPLE SCLEROSIS
     Dosage: WEEK1/2
     Route: 058
  2. REBIF [Suspect]
     Dosage: WEEK3/4
     Route: 058
     Dates: start: 20130130, end: 20130214
  3. REBIF [Suspect]
     Route: 058
     Dates: start: 20130318, end: 20131029
  4. REBIF [Suspect]
     Route: 058
     Dates: end: 2013
  5. MONTELUKAST [Concomitant]
     Indication: ASTHMA
     Route: 048
     Dates: start: 2009
  6. NITROFURANTOIN [Concomitant]
     Indication: PROPHYLAXIS
     Route: 048
     Dates: start: 2012

REACTIONS (9)
  - Pneumonia [Unknown]
  - Sleep disorder [Unknown]
  - Muscle spasms [Unknown]
  - Arthralgia [Unknown]
  - Pyrexia [Recovered/Resolved]
  - Fatigue [Unknown]
  - Headache [Unknown]
  - Injection site irritation [Unknown]
  - Injection site pruritus [Unknown]
